FAERS Safety Report 7994492-9 (Version None)
Quarter: 2011Q4

REPORT INFORMATION
  Report Type: 
  Country: None (occurrence: None)
  Receive Date: 20111220
  Receipt Date: 20111116
  Transmission Date: 20120403
  Serious: Yes (Hospitalization, Other)
  Sender: FDA-Public Use
  Company Number: US-ELI_LILLY_AND_COMPANY-US201104004090

PATIENT
  Sex: Female

DRUGS (11)
  1. SYNTHROID [Concomitant]
     Dosage: 50 MG, UNK
  2. EVISTA [Suspect]
     Indication: OSTEOPOROSIS
     Dosage: 60 MG, UNK
     Dates: start: 20070101, end: 20100901
  3. METFORMIN HCL [Concomitant]
  4. FORTEO [Suspect]
     Indication: OSTEOPOROSIS
     Dosage: 20 UG, QD
     Dates: start: 20101201
  5. MULTI-VITAMIN [Concomitant]
  6. FISH OIL [Concomitant]
  7. SIMVASTATIN [Concomitant]
  8. GLIMEPIRIDE [Concomitant]
     Dosage: UNK, BID
  9. VITAMIN D [Concomitant]
  10. CALCIUM CARBONATE [Concomitant]
     Dosage: 2000 MG, UNK
  11. CALCIUM CARBONATE [Concomitant]
     Dosage: 1000 MG, UNK

REACTIONS (8)
  - BLOOD CALCIUM DECREASED [None]
  - CORNEAL DYSTROPHY [None]
  - OEDEMA PERIPHERAL [None]
  - THYROIDECTOMY [None]
  - BONE DENSITY DECREASED [None]
  - BURN INFECTION [None]
  - BENIGN NEOPLASM OF THYROID GLAND [None]
  - THERMAL BURN [None]
